FAERS Safety Report 5817643-0 (Version None)
Quarter: 2008Q3

REPORT INFORMATION
  Report Type: 
  Country: None (occurrence: None)
  Receive Date: 20080722
  Receipt Date: 20080710
  Transmission Date: 20090109
  Serious: Yes (Other)
  Sender: FDA-Public Use
  Company Number: JP-ROCHE-557157

PATIENT
  Sex: Female
  Weight: 8 kg

DRUGS (7)
  1. TAMIFLU [Suspect]
     Route: 048
     Dates: start: 20060209, end: 20060212
  2. TAMIFLU [Suspect]
     Route: 048
     Dates: start: 20080213
  3. POLARAMINE [Suspect]
     Indication: RHINORRHOEA
     Route: 048
     Dates: start: 20060126
  4. THEO-DUR [Suspect]
     Indication: ASTHMA
     Dosage: DRUG NAME: THEODUR G
     Route: 048
     Dates: start: 20060131
  5. MUCOSOLVAN [Concomitant]
     Route: 048
     Dates: start: 20060126
  6. BROCIN [Concomitant]
     Route: 048
     Dates: start: 20060126
  7. HOKUNALIN [Concomitant]
     Dosage: FORM: TAPE
     Route: 062
     Dates: start: 20060126

REACTIONS (1)
  - ABNORMAL BEHAVIOUR [None]
